FAERS Safety Report 8507157-1 (Version None)
Quarter: 2012Q3

REPORT INFORMATION
  Report Type: 
  Country: None (occurrence: None)
  Receive Date: 20120712
  Receipt Date: 20120709
  Transmission Date: 20120928
  Serious: Yes (Disabling)
  Sender: FDA-Public Use
  Company Number: US-PFIZER INC-2012164430

PATIENT
  Sex: Female
  Weight: 107.48 kg

DRUGS (5)
  1. RANITIDINE [Concomitant]
     Dosage: UNK
  2. AMBIEN [Concomitant]
     Dosage: UNK
  3. EFFEXOR [Suspect]
     Indication: DEPRESSION
     Dosage: 37.5 MG, 2X/DAY
     Route: 048
     Dates: start: 20080101, end: 20120601
  4. LISINOPRIL [Concomitant]
     Dosage: UNK
  5. LAMICTAL [Concomitant]
     Dosage: 100 MG, UNK

REACTIONS (3)
  - AGORAPHOBIA [None]
  - DEPRESSION [None]
  - BIPOLAR DISORDER [None]
